FAERS Safety Report 23706441 (Version 2)
Quarter: 2024Q2

REPORT INFORMATION
  Report Type: Spontaneous
  Country: US (occurrence: US)
  Receive Date: 20240404
  Receipt Date: 20240621
  Transmission Date: 20240716
  Serious: No
  Sender: FDA-Public Use
  Company Number: US-MYLANLABS-2024M1027162

PATIENT
  Age: 75 Year
  Sex: Female
  Weight: 54.43 kg

DRUGS (1)
  1. TYRVAYA [Suspect]
     Active Substance: VARENICLINE TARTRATE
     Indication: Dry eye
     Dosage: 0.03 MILLIGRAM, BID ( TWICE A DAY)
     Route: 045
     Dates: start: 20240319

REACTIONS (2)
  - Circumstance or information capable of leading to medication error [Unknown]
  - Device defective [Unknown]

NARRATIVE: CASE EVENT DATE: 20240320
